FAERS Safety Report 5092887-7 (Version None)
Quarter: 2006Q3

REPORT INFORMATION
  Report Type: 
  Country: None (occurrence: None)
  Receive Date: 20060828
  Receipt Date: 20060823
  Transmission Date: 20061208
  Serious: Yes (Disabling)
  Sender: FDA-Public Use
  Company Number: 2006-146448-NL

PATIENT
  Age: 58 Year
  Sex: Male

DRUGS (1)
  1. MIRTAZAPINE [Suspect]
     Indication: DEPRESSION
     Dosage: 45 MG ORAL
     Route: 048

REACTIONS (1)
  - TARDIVE DYSKINESIA [None]
